FAERS Safety Report 4613284-1 (Version None)
Quarter: 2005Q1

REPORT INFORMATION
  Report Type: 
  Country: None (occurrence: None)
  Receive Date: 20050315
  Receipt Date: 20030320
  Transmission Date: 20050727
  Serious: No
  Sender: FDA-Public Use
  Company Number: 5040

PATIENT
  Age: 25 Year
  Sex: Female

DRUGS (5)
  1. MIDAZOLAM [Suspect]
     Indication: SENSORY DISTURBANCE
     Dates: start: 20020618, end: 20020618
  2. PROPOFOL [Suspect]
     Indication: SENSORY DISTURBANCE
     Dates: start: 20020618, end: 20020618
  3. MORPHINE SULFATE [Suspect]
     Indication: SENSORY DISTURBANCE
     Dates: start: 20020618
  4. ROCURONIUM BROMIDE [Suspect]
     Dosage: 40 MG ONCE
     Dates: start: 20020618, end: 20020618
  5. ALBUTEROL [Suspect]
     Indication: ASTHMA
     Dosage: 5 MG IH
     Route: 055
     Dates: start: 20020618

REACTIONS (2)
  - BRONCHOSPASM [None]
  - URTICARIA [None]
